APPROVED DRUG PRODUCT: CHLORPHENIRAMINE MALEATE
Active Ingredient: CHLORPHENIRAMINE MALEATE
Strength: 12MG
Dosage Form/Route: CAPSULE, EXTENDED RELEASE;ORAL
Application: A070797 | Product #001
Applicant: AUROLIFE PHARMA LLC
Approved: Aug 12, 1988 | RLD: No | RS: No | Type: DISCN